FAERS Safety Report 23267094 (Version 2)
Quarter: 2024Q4

REPORT INFORMATION
  Report Type: Spontaneous
  Country: US (occurrence: US)
  Receive Date: 20231206
  Receipt Date: 20241108
  Transmission Date: 20250115
  Serious: Yes (Other)
  Sender: PFIZER
  Company Number: US-PFIZER INC-202300426603

PATIENT
  Age: 47 Year
  Sex: Female

DRUGS (3)
  1. XELJANZ XR [Suspect]
     Active Substance: TOFACITINIB CITRATE
     Dosage: 11 MG, DAILY
     Route: 048
     Dates: start: 20191129
  2. XELJANZ XR [Suspect]
     Active Substance: TOFACITINIB CITRATE
     Dosage: 11 MG, 1X/DAY
     Route: 048
     Dates: start: 20191129
  3. VITAMIN D3 [Concomitant]
     Active Substance: CHOLECALCIFEROL
     Dosage: UNK

REACTIONS (6)
  - Anaemia [Recovered/Resolved]
  - Gastric banding [Recovered/Resolved]
  - Drug ineffective [Recovered/Resolved]
  - COVID-19 [Recovered/Resolved]
  - Pain [Recovered/Resolved]
  - Tooth abscess [Recovered/Resolved]
